FAERS Safety Report 14367916 (Version 1)
Quarter: 2018Q1

REPORT INFORMATION
  Report Type: Report from Study
  Country: BR (occurrence: BR)
  Receive Date: 20180109
  Receipt Date: 20180109
  Transmission Date: 20180509
  Serious: Yes (Death)
  Sender: FDA-Public Use
  Company Number: PHHY2018BR001844

PATIENT
  Sex: Female

DRUGS (1)
  1. DIOVAN HCT [Suspect]
     Active Substance: HYDROCHLOROTHIAZIDE\VALSARTAN
     Indication: HYPERTENSION
     Dosage: 1 DF (HYDROCHLOROTHIAZIDE 25 MG, VALSARTAN 160 MG), QD (MNG AT 08.00)
     Route: 048

REACTIONS (6)
  - Septic shock [Fatal]
  - Pneumonia [Fatal]
  - Pancreatitis [Fatal]
  - Hypertension [Fatal]
  - Multiple organ dysfunction syndrome [Fatal]
  - Obesity [Fatal]
